FAERS Safety Report 12119560 (Version 1)
Quarter: 2016Q1

REPORT INFORMATION
  Report Type: Report from Study
  Country: TW (occurrence: TW)
  Receive Date: 20160226
  Receipt Date: 20160226
  Transmission Date: 20160526
  Serious: Yes (Hospitalization, Other)
  Sender: FDA-Public Use
  Company Number: TW-JNJFOC-20160222174

PATIENT
  Age: 53 Year
  Sex: Male

DRUGS (7)
  1. NIFEDIPINE ER [Concomitant]
     Active Substance: NIFEDIPINE
     Dosage: POST CIBUM
     Route: 048
  2. VYTORIN [Concomitant]
     Active Substance: EZETIMIBE\SIMVASTATIN
     Dosage: EVERY NIGHT, POST CIBUM
     Route: 048
  3. STELARA [Suspect]
     Active Substance: USTEKINUMAB
     Indication: PSORIASIS
     Dosage: SECOND DOSE
     Route: 058
     Dates: start: 20130613
  4. FAMOTIDINE. [Concomitant]
     Active Substance: FAMOTIDINE
     Dosage: POST CIBUM
     Route: 048
  5. CANDESARTAN [Concomitant]
     Active Substance: CANDESARTAN
     Dosage: POST CIBUM
     Route: 048
  6. STELARA [Suspect]
     Active Substance: USTEKINUMAB
     Indication: PSORIASIS
     Dosage: FIRST DOSE
     Route: 058
     Dates: start: 20121213
  7. URSODEOXYCHOLIC ACID [Concomitant]
     Active Substance: URSODIOL
     Dosage: POST CIBUM
     Route: 048

REACTIONS (6)
  - Subarachnoid haemorrhage [Unknown]
  - Ruptured cerebral aneurysm [Recovering/Resolving]
  - Coma [Not Recovered/Not Resolved]
  - Cerebrovascular accident [Unknown]
  - Hydrocephalus [Unknown]
  - Dermatologic examination abnormal [Unknown]

NARRATIVE: CASE EVENT DATE: 20121226
